FAERS Safety Report 19676690 (Version 1)
Quarter: 2021Q3

REPORT INFORMATION
  Report Type: Spontaneous
  Country: US (occurrence: US)
  Receive Date: 20210809
  Receipt Date: 20210809
  Transmission Date: 20211014
  Serious: No
  Sender: FDA-Public Use
  Company Number: US-SA-2021SA257753

PATIENT
  Sex: Female

DRUGS (1)
  1. LANTUS SOLOSTAR [Suspect]
     Active Substance: INSULIN GLARGINE
     Indication: TYPE 1 DIABETES MELLITUS
     Dosage: 35 IU, BID (MORNING AND NIGHT)
     Route: 065

REACTIONS (3)
  - Inappropriate schedule of product administration [Unknown]
  - Cough [Unknown]
  - Rhinorrhoea [Unknown]
